FAERS Safety Report 8862079 (Version 1)
Quarter: 2012Q4

REPORT INFORMATION
  Report Type: 
  Country: US (occurrence: US)
  Receive Date: 20121026
  Receipt Date: 20121026
  Transmission Date: 20130627
  Serious: Yes (Other)
  Sender: FDA-Public Use
  Company Number: US-PFIZER INC-2012265328

PATIENT
  Age: 70 Year
  Sex: Female

DRUGS (2)
  1. XALKORI [Suspect]
     Indication: LUNG NEOPLASM MALIGNANT
     Dosage: 200 mg, 2x/day, for 28 days
     Route: 048
  2. XALKORI [Suspect]
     Indication: HEPATIC NEOPLASM MALIGNANT

REACTIONS (2)
  - Pulmonary oedema [Unknown]
  - Oedema peripheral [Unknown]
